FAERS Safety Report 16499321 (Version 1)
Quarter: 2019Q3

REPORT INFORMATION
  Report Type: Spontaneous
  Country: US (occurrence: US)
  Receive Date: 20190701
  Receipt Date: 20190701
  Transmission Date: 20191004
  Serious: Yes (Hospitalization)
  Sender: FDA-Public Use
  Company Number: US-OREXO US, INC.-ORE201906-000067

PATIENT
  Sex: Female
  Weight: 66.7 kg

DRUGS (3)
  1. ZUBSOLV [Suspect]
     Active Substance: BUPRENORPHINE HYDROCHLORIDE\NALOXONE HYDROCHLORIDE
     Dosage: 1.4 MG/ 0.36
     Route: 060
     Dates: end: 20190616
  2. PREDNISONE. [Suspect]
     Active Substance: PREDNISONE
  3. ZUBSOLV [Suspect]
     Active Substance: BUPRENORPHINE HYDROCHLORIDE\NALOXONE HYDROCHLORIDE
     Indication: DRUG WITHDRAWAL MAINTENANCE THERAPY
     Dosage: 1.4 MG/ 0.36
     Route: 060
     Dates: end: 20190616

REACTIONS (3)
  - Immune system disorder [Not Recovered/Not Resolved]
  - Pleurisy [Not Recovered/Not Resolved]
  - Influenza [Not Recovered/Not Resolved]
